FAERS Safety Report 15324322 (Version 1)
Quarter: 2018Q3

REPORT INFORMATION
  Report Type: Report from Study
  Country: JP (occurrence: JP)
  Receive Date: 20180828
  Receipt Date: 20180828
  Transmission Date: 20181010
  Serious: Yes (Hospitalization, Other)
  Sender: FDA-Public Use
  Company Number: JP-BAXTER-2018BAX022570

PATIENT
  Age: 59 Year
  Sex: Male
  Weight: 60 kg

DRUGS (10)
  1. ICLUSIG [Suspect]
     Active Substance: PONATINIB
     Dosage: TABLET, REGIMEN 4
     Route: 048
     Dates: start: 20180203
  2. DEXAMETHASONE. [Concomitant]
     Active Substance: DEXAMETHASONE
     Indication: PRODUCT USED FOR UNKNOWN INDICATION
     Dosage: TABLET, AS A PART OF HYPER CVAD THERAPY
     Route: 065
     Dates: start: 20171031, end: 20171113
  3. BAYASPIRIN [Concomitant]
     Active Substance: ASPIRIN
     Indication: PRODUCT USED FOR UNKNOWN INDICATION
     Route: 065
     Dates: start: 20170816, end: 20171104
  4. ICLUSIG [Suspect]
     Active Substance: PONATINIB
     Indication: ACUTE LYMPHOCYTIC LEUKAEMIA RECURRENT
     Dosage: TABLET, REGIMEN 2
     Route: 048
     Dates: start: 20170911, end: 20171029
  5. AMLODIPINE BESILATE [Concomitant]
     Active Substance: AMLODIPINE BESYLATE
     Indication: HYPERTENSION
     Route: 065
  6. ICLUSIG [Suspect]
     Active Substance: PONATINIB
     Indication: ACUTE LYMPHOCYTIC LEUKAEMIA
     Dosage: TABLET, REGIMEN 1
     Route: 048
     Dates: start: 20170727, end: 20170910
  7. ENDOXAN [Suspect]
     Active Substance: CYCLOPHOSPHAMIDE
     Indication: PRODUCT USED FOR UNKNOWN INDICATION
     Dosage: DOSAGE FORM: TABLET, REGIMEN 1, AS A PART OF HYPER CVAD THERAPY
     Route: 065
     Dates: start: 20171031, end: 20171113
  8. ICLUSIG [Suspect]
     Active Substance: PONATINIB
     Dosage: TABLET, REGIMEN 3
     Route: 048
     Dates: start: 20171030, end: 20171112
  9. ONCOVIN [Suspect]
     Active Substance: VINCRISTINE SULFATE
     Indication: PRODUCT USED FOR UNKNOWN INDICATION
     Dosage: REGIMEN 1, AS A PART OF HYPER CVAD THERAPY
     Route: 065
     Dates: start: 20171031, end: 20171113
  10. DOXORUBICIN HYDROCHLORIDE. [Suspect]
     Active Substance: DOXORUBICIN HYDROCHLORIDE
     Indication: PRODUCT USED FOR UNKNOWN INDICATION
     Dosage: REGIMEN 1, AS A PART OF HYPER CVAD THERAPY
     Route: 065
     Dates: start: 20171031, end: 20171113

REACTIONS (3)
  - Platelet count decreased [Recovered/Resolved]
  - Pancreatitis acute [Recovered/Resolved]
  - Amylase increased [Recovered/Resolved]

NARRATIVE: CASE EVENT DATE: 20171031
